FAERS Safety Report 21556794 (Version 1)
Quarter: 2022Q4

REPORT INFORMATION
  Report Type: Report from Study
  Country: AE (occurrence: AE)
  Receive Date: 20221104
  Receipt Date: 20221104
  Transmission Date: 20230113
  Serious: Yes (Death, Life-Threatening, Other)
  Sender: FDA-Public Use
  Company Number: AE-BRISTOL-MYERS SQUIBB COMPANY-2022-132380

PATIENT
  Age: 66 Year
  Sex: Male

DRUGS (2)
  1. OPDIVO [Suspect]
     Active Substance: NIVOLUMAB
     Indication: Non-small cell lung cancer metastatic
     Dosage: EVERY 2 WEEKS FOR 3 MONTHS
     Route: 042
     Dates: start: 20220817
  2. YERVOY [Suspect]
     Active Substance: IPILIMUMAB
     Indication: Non-small cell lung cancer metastatic
     Dosage: EVERY 6 WEEKS FOR 3 MONTHS
     Route: 042
     Dates: start: 20220817

REACTIONS (2)
  - Death [Fatal]
  - Off label use [Unknown]

NARRATIVE: CASE EVENT DATE: 20221002
